FAERS Safety Report 10195706 (Version 2)
Quarter: 2014Q2

REPORT INFORMATION
  Report Type: Report from Study
  Country: US (occurrence: US)
  Receive Date: 20140527
  Receipt Date: 20140527
  Transmission Date: 20141212
  Serious: Yes (Hospitalization, Other)
  Sender: FDA-Public Use
  Company Number: US-ROCHE-1392481

PATIENT
  Sex: Female

DRUGS (17)
  1. XOLAIR [Suspect]
     Indication: ASTHMA
     Route: 058
     Dates: start: 2009
  2. XOLAIR [Suspect]
     Route: 065
     Dates: start: 2012
  3. XOLAIR [Suspect]
     Route: 065
     Dates: start: 2011, end: 2013
  4. PREDNISONE [Concomitant]
     Indication: ASTHMA
  5. ALLEGRA [Concomitant]
     Indication: HYPERSENSITIVITY
  6. MUCINEX [Concomitant]
  7. DEPAKOTE [Concomitant]
     Indication: DEPRESSION
  8. DEPAKOTE [Concomitant]
     Indication: BIPOLAR DISORDER
  9. ALBUTEROL [Concomitant]
     Route: 065
  10. ATROVENT [Concomitant]
  11. DULERA [Concomitant]
     Route: 065
  12. HYDROCHLOROTHIAZIDE [Concomitant]
  13. FUROSEMIDE [Concomitant]
     Route: 065
  14. CYMBALTA [Concomitant]
     Indication: BIPOLAR DISORDER
  15. CYMBALTA [Concomitant]
     Indication: DEPRESSION
  16. AMBIEN [Concomitant]
     Route: 065
     Dates: start: 2006
  17. XANAX [Concomitant]

REACTIONS (10)
  - Nasal operation [Recovered/Resolved]
  - Asthma [Recovered/Resolved]
  - Respiratory distress [Unknown]
  - Cough [Not Recovered/Not Resolved]
  - Blood pressure decreased [Unknown]
  - Nasopharyngitis [Not Recovered/Not Resolved]
  - Therapeutic product ineffective [Unknown]
  - Fluid retention [Unknown]
  - Tremor [Unknown]
  - Headache [Not Recovered/Not Resolved]
